FAERS Safety Report 8654472 (Version 9)
Quarter: 2015Q1

REPORT INFORMATION
  Report Type: Report from Study
  Country: JP (occurrence: JP)
  Receive Date: 20120709
  Receipt Date: 20150206
  Transmission Date: 20150721
  Serious: Yes (Life-Threatening, Hospitalization, Other)
  Sender: FDA-Public Use
  Company Number: JP-MSD JAPAN-1205USA03090

PATIENT
  Age: 49 Year
  Sex: Female

DRUGS (23)
  1. ZOLINZA [Suspect]
     Active Substance: VORINOSTAT
     Dosage: 300 MG, QD
     Route: 048
     Dates: start: 20120608, end: 20120905
  2. UNASYN (SULTAMICILLIN TOSYLATE) [Suspect]
     Active Substance: SULTAMICILLIN TOSYLATE
     Dosage: 3 G, BID
     Route: 041
     Dates: start: 20120825, end: 20120827
  3. GASTER [Concomitant]
     Active Substance: FAMOTIDINE
     Indication: PROPHYLAXIS
     Dosage: 20 MG, QD
     Route: 048
     Dates: end: 20120512
  4. MEROPEN [Suspect]
     Active Substance: MEROPENEM
     Dosage: 1 G, TID
     Route: 041
     Dates: start: 20120907, end: 20120914
  5. ZOLINZA [Suspect]
     Active Substance: VORINOSTAT
     Dosage: 300 MG, QD
     Route: 048
     Dates: start: 20120508, end: 20120601
  6. CELESTAMINE [Concomitant]
     Active Substance: BETAMETHASONE\DEXCHLORPHENIRAMINE MALEATE
     Indication: MYCOSIS FUNGOIDES
     Dosage: 1 DF, QD
     Route: 048
     Dates: end: 20120723
  7. CRAVIT [Concomitant]
     Active Substance: LEVOFLOXACIN
     Indication: PROPHYLAXIS
     Dosage: 500 MG, QD
     Route: 048
     Dates: start: 20120413, end: 20120416
  8. MAXIPIME [Suspect]
     Active Substance: CEFEPIME HYDROCHLORIDE
     Dosage: DAILY DOSE 4G, 1 DAY, DOSAG TEXT 1-1-2G
     Route: 041
     Dates: start: 20120827, end: 20120831
  9. MEROPEN [Suspect]
     Active Substance: MEROPENEM
     Dosage: 0.5 G, BID
     Route: 041
     Dates: start: 20121215, end: 20121218
  10. UNASYN (SULTAMICILLIN TOSYLATE) [Suspect]
     Active Substance: SULTAMICILLIN TOSYLATE
     Indication: FEBRILE NEUTROPENIA
     Dosage: 1.5 MG, BID
     Route: 041
     Dates: start: 20120723, end: 20120803
  11. MEROPEN [Suspect]
     Active Substance: MEROPENEM
     Indication: FEBRILE NEUTROPENIA
     Dosage: 1 G, TID
     Route: 041
     Dates: start: 20120420, end: 20120424
  12. ROCEPHIN [Concomitant]
     Active Substance: CEFTRIAXONE SODIUM
     Indication: MYELODYSPLASTIC SYNDROME
  13. MAXIPIME [Suspect]
     Active Substance: CEFEPIME HYDROCHLORIDE
     Indication: FEBRILE NEUTROPENIA
     Dosage: DAILY DOSE 4G, 1 DAY, DOSAG TEXT 1-1-2G
     Route: 041
     Dates: start: 20120804, end: 20120807
  14. MAXIPIME [Suspect]
     Active Substance: CEFEPIME HYDROCHLORIDE
     Dosage: 1 G, BID
     Route: 041
     Dates: start: 20121212, end: 20121214
  15. CELESTAMINE [Concomitant]
     Active Substance: BETAMETHASONE\DEXCHLORPHENIRAMINE MALEATE
     Dosage: 1 DF, QD
     Route: 048
     Dates: start: 20121111, end: 20121212
  16. ROCEPHIN [Concomitant]
     Active Substance: CEFTRIAXONE SODIUM
     Indication: FEBRILE NEUTROPENIA
     Dosage: 1 G, QD
     Route: 041
     Dates: start: 20120417, end: 20120420
  17. ZOLINZA [Suspect]
     Active Substance: VORINOSTAT
     Indication: MYCOSIS FUNGOIDES
     Dosage: 400 MG, QD
     Route: 048
     Dates: start: 20120403, end: 20120413
  18. ZOLINZA [Suspect]
     Active Substance: VORINOSTAT
     Dosage: 300 MG, QD
     Route: 048
     Dates: start: 20120414, end: 20120420
  19. ITRIZOLE [Concomitant]
     Active Substance: ITRACONAZOLE
     Indication: PROPHYLAXIS
     Dosage: 200 MG, QD
     Route: 048
     Dates: end: 20120423
  20. ITRIZOLE [Concomitant]
     Active Substance: ITRACONAZOLE
     Indication: BRONCHOPULMONARY ASPERGILLOSIS
     Dosage: 200 MG, QD
     Route: 048
     Dates: start: 20120725, end: 20120909
  21. ZOLINZA [Suspect]
     Active Substance: VORINOSTAT
     Dosage: 300 MG, QD
     Route: 048
     Dates: start: 20120921, end: 20121214
  22. UNASYN (SULTAMICILLIN TOSYLATE) [Suspect]
     Active Substance: SULTAMICILLIN TOSYLATE
     Dosage: 1.5 G, BID
     Route: 041
     Dates: start: 20121203, end: 20121212
  23. ALLEGRA [Concomitant]
     Active Substance: FEXOFENADINE HYDROCHLORIDE
     Indication: MYCOSIS FUNGOIDES
     Dosage: 60 MG, BID
     Route: 048
     Dates: end: 20120722

REACTIONS (8)
  - Hypoaesthesia [Recovering/Resolving]
  - Nausea [Not Recovered/Not Resolved]
  - Dehydration [Recovered/Resolved]
  - Diarrhoea [Not Recovered/Not Resolved]
  - Diarrhoea [Recovered/Resolved]
  - Blood pressure decreased [Recovered/Resolved]
  - Hypokalaemia [Recovered/Resolved]
  - Neutrophil count decreased [Recovering/Resolving]

NARRATIVE: CASE EVENT DATE: 20120413
